FAERS Safety Report 25200998 (Version 1)
Quarter: 2025Q2

REPORT INFORMATION
  Report Type: Report from Study
  Country: US (occurrence: US)
  Receive Date: 20250416
  Receipt Date: 20250416
  Transmission Date: 20250716
  Serious: Yes (Disabling)
  Sender: ABBVIE
  Company Number: US-ABBVIE-6223124

PATIENT
  Age: 76 Year
  Sex: Female

DRUGS (1)
  1. RINVOQ [Suspect]
     Active Substance: UPADACITINIB
     Indication: Product used for unknown indication
     Route: 048
     Dates: start: 2020

REACTIONS (5)
  - Disability [Unknown]
  - Coagulopathy [Recovered/Resolved]
  - Skin disorder [Not Recovered/Not Resolved]
  - Respiration abnormal [Unknown]
  - Chloasma [Unknown]

NARRATIVE: CASE EVENT DATE: 20240301
